FAERS Safety Report 10454211 (Version 1)
Quarter: 2014Q3

REPORT INFORMATION
  Report Type: Spontaneous
  Country: US (occurrence: US)
  Receive Date: 20140915
  Receipt Date: 20140915
  Transmission Date: 20150326
  Serious: Yes (Death, Life-Threatening, Other)
  Sender: FDA-Public Use
  Company Number: US-ROXANE LABORATORIES, INC.-2014-RO-01370RO

PATIENT
  Age: 35 Year
  Sex: Female

DRUGS (1)
  1. CITALOPRAM [Suspect]
     Active Substance: CITALOPRAM HYDROBROMIDE
     Indication: PRODUCT USED FOR UNKNOWN INDICATION
     Route: 065

REACTIONS (8)
  - Serotonin syndrome [Unknown]
  - Haemodynamic instability [Unknown]
  - Torsade de pointes [Unknown]
  - Intentional overdose [Fatal]
  - Cardiac arrest [Recovered/Resolved]
  - Ventricular fibrillation [Unknown]
  - Pulseless electrical activity [Recovered/Resolved]
  - Convulsion [Unknown]
